FAERS Safety Report 19199623 (Version 3)
Quarter: 2022Q2

REPORT INFORMATION
  Report Type: Spontaneous
  Country: US (occurrence: None)
  Receive Date: 20210430
  Receipt Date: 20220405
  Transmission Date: 20220720
  Serious: Yes (Other)
  Sender: FDA-Public Use
  Company Number: US-ROCHE-2818560

PATIENT
  Sex: Male

DRUGS (2)
  1. ESBRIET [Suspect]
     Active Substance: PIRFENIDONE
     Indication: Idiopathic pulmonary fibrosis
     Route: 048
     Dates: start: 20170617
  2. PREDNISONE [Concomitant]
     Active Substance: PREDNISONE
     Indication: Cough

REACTIONS (2)
  - Lung neoplasm malignant [Recovering/Resolving]
  - Malaise [Unknown]
